FAERS Safety Report 19150938 (Version 2)
Quarter: 2021Q2

REPORT INFORMATION
  Report Type: Spontaneous
  Country: FR (occurrence: FR)
  Receive Date: 20210419
  Receipt Date: 20210430
  Transmission Date: 20210717
  Serious: Yes (Hospitalization, Other)
  Sender: FDA-Public Use
  Company Number: FR-ASTELLAS-2021US013377

PATIENT
  Age: 70 Year
  Sex: Male

DRUGS (6)
  1. GILTERITINIB [Suspect]
     Active Substance: GILTERITINIB
     Indication: ACUTE MYELOID LEUKAEMIA
     Dosage: UNK UNK, UNKNOWN FREQ.
     Route: 065
     Dates: start: 20201127, end: 20210129
  2. GILTERITINIB [Suspect]
     Active Substance: GILTERITINIB
     Dosage: 120 MG, DAILY
     Route: 065
     Dates: start: 20210315
  3. CHOLURSO [Concomitant]
     Active Substance: URSODIOL
     Indication: PRODUCT USED FOR UNKNOWN INDICATION
     Dosage: 1 DF, TWICE DAILY (MORNING AND NIGHT)
     Route: 065
  4. GILTERITINIB [Suspect]
     Active Substance: GILTERITINIB
     Route: 065
  5. PANTOPRAZOLE [Concomitant]
     Active Substance: PANTOPRAZOLE
     Indication: PRODUCT USED FOR UNKNOWN INDICATION
     Dosage: UNK UNK, UNKNOWN FREQ.
     Route: 065
  6. GILTERITINIB [Suspect]
     Active Substance: GILTERITINIB
     Dosage: 80 MG, DAILY
     Route: 065
     Dates: start: 20210205, end: 20210225

REACTIONS (8)
  - Acute myeloid leukaemia [Unknown]
  - Differentiation syndrome [Recovered/Resolved]
  - Bone marrow disorder [Recovering/Resolving]
  - Febrile bone marrow aplasia [Recovering/Resolving]
  - Myelocytosis [Unknown]
  - Bone marrow failure [Recovering/Resolving]
  - Hyperleukocytosis [Recovering/Resolving]
  - Differentiation syndrome [Recovered/Resolved]

NARRATIVE: CASE EVENT DATE: 20210129
